FAERS Safety Report 10499394 (Version 1)
Quarter: 2014Q4

REPORT INFORMATION
  Report Type: Spontaneous
  Country: US (occurrence: US)
  Receive Date: 20141006
  Receipt Date: 20141006
  Transmission Date: 20150528
  Serious: No
  Sender: FDA-Public Use
  Company Number: US-AMGEN INC.-USASP2014044575

PATIENT

DRUGS (5)
  1. XGEVA [Suspect]
     Active Substance: DENOSUMAB
     Indication: PRODUCT USED FOR UNKNOWN INDICATION
     Route: 065
  2. FIRMAGON [Concomitant]
     Active Substance: DEGARELIX ACETATE
  3. CYMBALTA [Concomitant]
     Active Substance: DULOXETINE HYDROCHLORIDE
  4. MORPHINE [Concomitant]
     Active Substance: MORPHINE
  5. SULPHUR [Concomitant]
     Active Substance: SULFUR

REACTIONS (2)
  - Back pain [Unknown]
  - Arthralgia [Unknown]
